FAERS Safety Report 14368490 (Version 1)
Quarter: 2018Q1

REPORT INFORMATION
  Report Type: Report from Study
  Country: CA (occurrence: CA)
  Receive Date: 20180109
  Receipt Date: 20180109
  Transmission Date: 20180509
  Serious: Yes (Other)
  Sender: FDA-Public Use
  Company Number: CA-GILEAD-2017-0304153

PATIENT
  Age: 62 Year
  Sex: Male

DRUGS (3)
  1. LEDIPASVIR/SOFOSBUVIR [Suspect]
     Active Substance: LEDIPASVIR\SOFOSBUVIR
     Indication: CHRONIC HEPATITIS C
     Dosage: 1 DF, UNK
     Route: 048
     Dates: start: 20160401
  2. PROPANOLOL                         /00030001/ [Concomitant]
     Active Substance: PROPRANOLOL HYDROCHLORIDE
  3. JANUMET [Concomitant]
     Active Substance: METFORMIN HYDROCHLORIDE\SITAGLIPTIN PHOSPHATE

REACTIONS (10)
  - Hepatic function abnormal [Unknown]
  - Blood alkaline phosphatase increased [Unknown]
  - Hepatitis C [Not Recovered/Not Resolved]
  - Aspartate aminotransferase increased [Unknown]
  - Alpha 1 foetoprotein increased [Unknown]
  - Hepatic mass [Unknown]
  - Asthenia [Unknown]
  - Splenomegaly [Unknown]
  - Gamma-glutamyltransferase increased [Unknown]
  - Drug ineffective [Not Recovered/Not Resolved]

NARRATIVE: CASE EVENT DATE: 201609
